FAERS Safety Report 7544227-9 (Version None)
Quarter: 2011Q2

REPORT INFORMATION
  Report Type: 
  Country: None (occurrence: None)
  Receive Date: 20110613
  Receipt Date: 20070718
  Transmission Date: 20111010
  Serious: Yes (Other)
  Sender: FDA-Public Use
  Company Number: PHFR2004IE02182

PATIENT
  Sex: Male

DRUGS (2)
  1. CLOZAPINE [Suspect]
     Indication: SCHIZOPHRENIA
     Dosage: UNK, UNK
     Route: 048
     Dates: start: 20030813
  2. CITALOPRAM HYDROBROMIDE [Concomitant]
     Route: 065

REACTIONS (6)
  - SEASONAL ALLERGY [None]
  - VIRAL INFECTION [None]
  - ASTHMA [None]
  - DYSPNOEA [None]
  - LOWER RESPIRATORY TRACT INFECTION [None]
  - INFLAMMATION [None]
